FAERS Safety Report 10228627 (Version 1)
Quarter: 2014Q2

REPORT INFORMATION
  Report Type: Spontaneous
  Country: PE (occurrence: PE)
  Receive Date: 20140610
  Receipt Date: 20140610
  Transmission Date: 20141212
  Serious: Yes (Hospitalization)
  Sender: FDA-Public Use
  Company Number: PE-B.I. PHARMACEUTICALS,INC./RIDGEFIELD-2014-BI-25494PB

PATIENT
  Age: 56 Year
  Sex: Male

DRUGS (4)
  1. PRADAXA [Suspect]
     Indication: THROMBOSIS PROPHYLAXIS
     Dosage: 300 MG
     Route: 048
     Dates: start: 2014, end: 201405
  2. DIGOXIN [Concomitant]
     Indication: CARDIAC DISORDER
     Route: 065
  3. ATORVASTATINE [Concomitant]
     Indication: HYPERLIPIDAEMIA
     Route: 065
  4. AMIODARONE [Concomitant]
     Indication: CARDIAC DISORDER
     Route: 065

REACTIONS (1)
  - Deep vein thrombosis [Unknown]
